FAERS Safety Report 8906997 (Version 2)
Quarter: 2013Q2

REPORT INFORMATION
  Report Type: Report from Study
  Country: JP (occurrence: JP)
  Receive Date: 20121114
  Receipt Date: 20130417
  Transmission Date: 20140414
  Serious: Yes (Other)
  Sender: FDA-Public Use
  Company Number: JP-VERTEX PHARMACEUTICAL INC.-AE-2012-006071

PATIENT
  Age: 64 Year
  Sex: Female

DRUGS (14)
  1. VX-950 (TELAPREVIR) [Suspect]
     Indication: CHRONIC HEPATITIS C
     Dosage: 1500 MG, QD
     Route: 048
     Dates: start: 20120130, end: 20120423
  2. RIBAVIRIN [Suspect]
     Indication: CHRONIC HEPATITIS C
     Dosage: 400 MG, QD
     Route: 048
     Dates: start: 20120130, end: 20120219
  3. RIBAVIRIN [Suspect]
     Dosage: 200 MG, QD
     Route: 048
     Dates: start: 20120220, end: 20120603
  4. RIBAVIRIN [Suspect]
     Dosage: 400 MG, QD
     Route: 048
     Dates: start: 20120604
  5. PEGINTERFERON ALFA-2B [Suspect]
     Indication: CHRONIC HEPATITIS C
     Dosage: 1.5 ?G/KG, QW
     Route: 058
     Dates: start: 20120130, end: 20120219
  6. PEGINTERFERON ALFA-2B [Suspect]
     Dosage: 1.12 ?G/KG, QW
     Route: 058
     Dates: start: 20120220
  7. EVAMYL [Concomitant]
     Dosage: 1 MG, QD
     Route: 048
     Dates: end: 20120204
  8. LOCHOL                             /01224502/ [Concomitant]
     Route: 048
  9. LOCHOL                             /01224502/ [Concomitant]
     Dosage: UNK
     Route: 048
     Dates: start: 20120316
  10. LOCHOL                             /01224502/ [Concomitant]
     Dosage: UNK
     Route: 048
  11. ZETIA [Concomitant]
     Dosage: 10 MG, QD
     Route: 048
     Dates: start: 20120213
  12. EVISTA [Concomitant]
     Dosage: 60 MG, QD
     Route: 048
     Dates: start: 20120213
  13. TSUMURA CHOREITO [Concomitant]
     Dosage: 7.5 G, QD
     Route: 048
     Dates: start: 20120305
  14. OLMETEC [Concomitant]
     Dosage: 40 MG, QD
     Route: 048

REACTIONS (1)
  - Pancytopenia [Not Recovered/Not Resolved]
